FAERS Safety Report 9027178 (Version 3)
Quarter: 2013Q4

REPORT INFORMATION
  Report Type: Report from Study
  Country: FR (occurrence: FR)
  Receive Date: 20130123
  Receipt Date: 20131108
  Transmission Date: 20140711
  Serious: Yes (Hospitalization)
  Sender: FDA-Public Use
  Company Number: FR-GLAXOSMITHKLINE-B0861727A

PATIENT
  Age: 63 Year
  Sex: Female

DRUGS (5)
  1. LAPATINIB [Suspect]
     Indication: BREAST CANCER
     Dosage: 750MG PER DAY
     Route: 048
     Dates: start: 20121129
  2. BKM120 [Suspect]
     Indication: BREAST CANCER
     Dosage: 60MG PER DAY
     Route: 048
     Dates: start: 20121129, end: 20130102
  3. OMEPRAZOLE [Concomitant]
  4. DAONIL [Concomitant]
  5. METEOSPASMYL [Concomitant]

REACTIONS (1)
  - Hyperglycaemia [Recovered/Resolved]
